FAERS Safety Report 10204585 (Version 2)
Quarter: 2014Q3

REPORT INFORMATION
  Report Type: Spontaneous
  Country: US (occurrence: US)
  Receive Date: 20140529
  Receipt Date: 20140703
  Transmission Date: 20150326
  Serious: Yes (Hospitalization)
  Sender: FDA-Public Use
  Company Number: US-BAYER-2014-076752

PATIENT
  Age: 20 Year
  Sex: Female

DRUGS (2)
  1. ULTRAM [Concomitant]
     Active Substance: TRAMADOL HYDROCHLORIDE
     Indication: SCOLIOSIS
     Dosage: UNK
     Dates: start: 2003, end: 2005
  2. MIRENA [Suspect]
     Active Substance: LEVONORGESTREL
     Indication: CONTRACEPTION
     Dosage: 20 MCG/24HR, CONT
     Route: 015
     Dates: start: 20040826, end: 20050915

REACTIONS (10)
  - Pelvic adhesions [None]
  - Emotional distress [None]
  - Medical device discomfort [None]
  - Device difficult to use [None]
  - Uterine perforation [None]
  - Pelvic pain [None]
  - Injury [None]
  - Dysmenorrhoea [None]
  - Dyspareunia [None]
  - Device dislocation [None]

NARRATIVE: CASE EVENT DATE: 2004
